FAERS Safety Report 5412162-8 (Version None)
Quarter: 2007Q3

REPORT INFORMATION
  Report Type: 
  Country: None (occurrence: None)
  Receive Date: 20070713
  Receipt Date: 20070516
  Transmission Date: 20080115
  Serious: No
  Sender: FDA-Public Use
  Company Number: 2007SP001824

PATIENT
  Age: 55 Year
  Sex: Male

DRUGS (5)
  1. LUNESTA [Suspect]
     Indication: INSOMNIA
     Dosage: 2 MG; 1X; ORAL, 4 MG; 1X; ORAL
     Route: 048
     Dates: start: 20070514, end: 20070514
  2. LUNESTA [Suspect]
     Indication: INSOMNIA
     Dosage: 2 MG; 1X; ORAL, 4 MG; 1X; ORAL
     Route: 048
     Dates: start: 20070515, end: 20070515
  3. LORTAB [Concomitant]
  4. GLUCOSAMINE [Concomitant]
  5. VITAMINS [Concomitant]

REACTIONS (3)
  - INITIAL INSOMNIA [None]
  - NAUSEA [None]
  - STOMACH DISCOMFORT [None]
